FAERS Safety Report 7884851-7 (Version None)
Quarter: 2011Q4

REPORT INFORMATION
  Report Type: 
  Country: None (occurrence: None)
  Receive Date: 20111102
  Receipt Date: 20111024
  Transmission Date: 20120403
  Serious: Yes (Hospitalization, Other)
  Sender: FDA-Public Use
  Company Number: PHHY2011US02993

PATIENT
  Sex: Male

DRUGS (7)
  1. IBUPROFEN (ADVIL) [Concomitant]
  2. GLEEVEC [Suspect]
     Dosage: 400 MG, BID
     Route: 048
  3. GLEEVEC [Suspect]
     Dosage: 1 TABLET BY MOUTH EVERY DAY
     Route: 048
  4. METFORMIN HCL [Concomitant]
     Dosage: 500 MG, UNK
  5. QUINAPRIL [Concomitant]
     Dosage: 5 MG, UNK
  6. HYDROCHLOROTHIAZID [Concomitant]
  7. GLEEVEC [Suspect]
     Dosage: 400 MG, QD
     Route: 048

REACTIONS (4)
  - BACTERIAL INFECTION [None]
  - HYPOTENSION [None]
  - ABDOMINAL DISCOMFORT [None]
  - ABDOMINAL DISTENSION [None]
